FAERS Safety Report 8339382-7 (Version None)
Quarter: 2012Q2

REPORT INFORMATION
  Report Type: 
  Country: None (occurrence: None)
  Receive Date: 20120505
  Receipt Date: 20120302
  Transmission Date: 20120825
  Serious: Yes (Other)
  Sender: FDA-Public Use
  Company Number: USW201204-000070

PATIENT
  Age: 36 Year
  Sex: Female

DRUGS (6)
  1. BACLOFEN [Suspect]
     Indication: PRODUCT USED FOR UNKNOWN INDICATION
     Dosage: 15 MG (5 MG, 3 IN 1 DAY)
     Dates: end: 20111209
  2. CLONAZEPAM [Suspect]
     Indication: PRODUCT USED FOR UNKNOWN INDICATION
     Dosage: 2 MG (2 MG, 1 IN 1 DAY), ORAL
     Route: 048
  3. PREGABALIN [Suspect]
     Indication: PAIN
     Dosage: 300 MG (150 MG, 2 IN 1 DAY), ORAL
     Route: 048
     Dates: start: 20111203, end: 20111209
  4. PREGABALIN [Suspect]
     Indication: ILL-DEFINED DISORDER
     Dosage: 300 MG (150 MG, 2 IN 1 DAY), ORAL
     Route: 048
     Dates: start: 20111203, end: 20111209
  5. AMITRIPTYLINE HCL [Suspect]
     Indication: PRODUCT USED FOR UNKNOWN INDICATION
     Dosage: 20 MG (20 MG, 1 IN 1 DAY), ORAL
     Route: 048
  6. BOTULINUM TOXIN TYPE B (BOTULINUM TOXIN TYPE B) (BOTULINUM TOXIN TYPE [Suspect]
     Indication: DYSTONIA
     Dosage: 10000 IU, 1 IN 16 WEEKS, INTRAMUSCULAR
     Route: 030
     Dates: start: 20090604

REACTIONS (3)
  - PREGNANCY [None]
  - MATERNAL EXPOSURE TIMING UNSPECIFIED [None]
  - ABORTION SPONTANEOUS [None]
